FAERS Safety Report 9064737 (Version 3)
Quarter: 2013Q3

REPORT INFORMATION
  Report Type: Spontaneous
  Country: DE (occurrence: DE)
  Receive Date: 20130213
  Receipt Date: 20130710
  Transmission Date: 20140515
  Serious: Yes (Death)
  Sender: FDA-Public Use
  Company Number: DE-UCBSA-078037

PATIENT
  Age: 76 Year
  Sex: Female

DRUGS (3)
  1. VIMPAT [Suspect]
     Indication: STATUS EPILEPTICUS
     Route: 042
  2. KEPPRA [Suspect]
     Indication: STATUS EPILEPTICUS
  3. PHENYTOIN [Concomitant]
     Indication: STATUS EPILEPTICUS

REACTIONS (2)
  - Urosepsis [Fatal]
  - Pneumonia [Unknown]
